FAERS Safety Report 15551029 (Version 1)
Quarter: 2018Q4

REPORT INFORMATION
  Report Type: Spontaneous
  Country: None (occurrence: US)
  Receive Date: 20181025
  Receipt Date: 20181025
  Transmission Date: 20190205
  Serious: No
  Sender: FDA-Public Use
  Company Number: PHEH2004US07907

PATIENT
  Age: 57 Year
  Sex: Female
  Weight: 79.82 kg

DRUGS (7)
  1. LESCOL [Concomitant]
     Active Substance: FLUVASTATIN SODIUM
  2. ASA [Concomitant]
     Active Substance: ASPIRIN
  3. FEMARA [Suspect]
     Active Substance: LETROZOLE
     Dosage: 2.5 MG, QD
     Dates: start: 200406
  4. ATENOLOL. [Concomitant]
     Active Substance: ATENOLOL
  5. FEMARA [Suspect]
     Active Substance: LETROZOLE
     Indication: BREAST CANCER
     Dosage: 2.5 MG, BID
     Dates: start: 20030515, end: 20040712
  6. ALTACE [Concomitant]
     Active Substance: RAMIPRIL
  7. ARIMIDEX [Concomitant]
     Active Substance: ANASTROZOLE

REACTIONS (13)
  - Arthralgia [Recovering/Resolving]
  - Chest pain [Recovering/Resolving]
  - Hypoaesthesia [Recovering/Resolving]
  - Insomnia [Recovering/Resolving]
  - Medication error [Recovering/Resolving]
  - Pleuritic pain [None]
  - Paraesthesia [Recovering/Resolving]
  - Fatigue [Recovering/Resolving]
  - Anxiety [Recovering/Resolving]
  - Pain [None]
  - Myalgia [Recovering/Resolving]
  - Emotional distress [Recovering/Resolving]
  - Feeling abnormal [Recovering/Resolving]

NARRATIVE: CASE EVENT DATE: 20030515
